FAERS Safety Report 4897621-9 (Version None)
Quarter: 2006Q1

REPORT INFORMATION
  Report Type: 
  Country: None (occurrence: None)
  Receive Date: 20060201
  Receipt Date: 20060125
  Transmission Date: 20060701
  Serious: Yes (Other)
  Sender: FDA-Public Use
  Company Number: 2006UW01306

PATIENT
  Age: 65 Year
  Sex: Female

DRUGS (2)
  1. SEROQUEL [Suspect]
     Indication: SCHIZOPHRENIA
     Dosage: 200 MG QAM AND 600 MG HS
     Route: 048
  2. RESTORIL [Concomitant]
     Indication: SLEEP DISORDER

REACTIONS (1)
  - ATRIAL FLUTTER [None]
